FAERS Safety Report 10564147 (Version 5)
Quarter: 2015Q1

REPORT INFORMATION
  Report Type: Report from Study
  Country: US (occurrence: US)
  Receive Date: 20141104
  Receipt Date: 20150319
  Transmission Date: 20150720
  Serious: Yes (Other)
  Sender: FDA-Public Use
  Company Number: PHEH2014US020548

PATIENT
  Age: 84 Year
  Sex: Male
  Weight: 88.44 kg

DRUGS (5)
  1. EXJADE [Suspect]
     Active Substance: DEFERASIROX
     Dosage: 500 MG, QD
     Route: 048
     Dates: start: 201405
  2. PYRIDOXINE [Concomitant]
     Active Substance: PYRIDOXINE
     Indication: MYELODYSPLASTIC SYNDROME
     Dosage: 300 MG, QD
     Route: 048
     Dates: start: 20120709
  3. EXJADE [Suspect]
     Active Substance: DEFERASIROX
     Dosage: 500 MG, QD
     Route: 048
     Dates: start: 201312, end: 201403
  4. EXJADE [Suspect]
     Active Substance: DEFERASIROX
     Indication: MYELODYSPLASTIC SYNDROME
     Dosage: 500 MG, QD
     Route: 048
     Dates: start: 201308, end: 201310
  5. EXJADE [Suspect]
     Active Substance: DEFERASIROX
     Dosage: UNK, 4 DAYS A WEEK (MONDAY, WEDNESDAY, THURSDAY AND SATURDAY)
     Route: 065

REACTIONS (2)
  - Urinary tract infection [Recovered/Resolved]
  - Hepatic enzyme increased [Recovered/Resolved]

NARRATIVE: CASE EVENT DATE: 201310
